FAERS Safety Report 25803543 (Version 1)
Quarter: 2025Q3

REPORT INFORMATION
  Report Type: Spontaneous
  Country: US (occurrence: None)
  Receive Date: 20250915
  Receipt Date: 20250915
  Transmission Date: 20251021
  Serious: Yes (Hospitalization)
  Sender: FDA-CTU
  Company Number: None

PATIENT
  Age: 68 Year
  Sex: Male

DRUGS (5)
  1. LENALIDOMIDE [Suspect]
     Active Substance: LENALIDOMIDE
     Indication: Stem cell transplant
     Dosage: FREQUENCY : DAILY;?
     Route: 048
     Dates: start: 20250208, end: 20250912
  2. ASPIRIN [Concomitant]
     Active Substance: ASPIRIN
  3. GABAPENTI N CAP 300MG [Concomitant]
  4. IBUPROFEN [Concomitant]
     Active Substance: IBUPROFEN
  5. NARCAN SPR 4MG [Concomitant]

REACTIONS (1)
  - Confusional state [None]

NARRATIVE: CASE EVENT DATE: 20250908
